FAERS Safety Report 6368519-4 (Version None)
Quarter: 2009Q3

REPORT INFORMATION
  Report Type: 
  Country: None (occurrence: None)
  Receive Date: 20090922
  Receipt Date: 20090914
  Transmission Date: 20100115
  Serious: Yes (Hospitalization)
  Sender: FDA-Public Use
  Company Number: B0593976A

PATIENT
  Sex: Male

DRUGS (19)
  1. ZIAGEN [Suspect]
     Indication: ACQUIRED IMMUNODEFICIENCY SYNDROME
     Route: 048
     Dates: start: 20040114, end: 20040331
  2. ZIAGEN [Suspect]
     Dosage: 300MG TWICE PER DAY
     Route: 048
     Dates: start: 20040401, end: 20050623
  3. ZIAGEN [Suspect]
     Dosage: 300MG TWICE PER DAY
     Route: 048
     Dates: start: 20050817
  4. EPIVIR [Suspect]
     Indication: ACQUIRED IMMUNODEFICIENCY SYNDROME
     Dosage: 150MG TWICE PER DAY
     Route: 048
     Dates: start: 19970228, end: 19991031
  5. EPIVIR [Suspect]
     Route: 048
     Dates: start: 19991101, end: 20030331
  6. EPIVIR [Suspect]
     Dosage: 150MG TWICE PER DAY
     Route: 048
     Dates: start: 20030401, end: 20040113
  7. EPIVIR [Suspect]
     Dosage: 150MG PER DAY
     Route: 048
     Dates: start: 20040114, end: 20040331
  8. EPIVIR [Suspect]
     Route: 048
     Dates: start: 20040401, end: 20050324
  9. EPIVIR [Suspect]
     Route: 048
     Dates: start: 20050325, end: 20050623
  10. EPIVIR [Suspect]
     Route: 048
     Dates: start: 20050817
  11. LEXIVA [Suspect]
     Indication: ACQUIRED IMMUNODEFICIENCY SYNDROME
     Dosage: 1400MG TWICE PER DAY
     Route: 048
     Dates: start: 20050817
  12. HERBESSER [Concomitant]
     Indication: HYPERTENSION
     Dosage: 100MG PER DAY
     Route: 065
     Dates: start: 20081110, end: 20081122
  13. PANALDINE [Concomitant]
     Dosage: 100MG TWICE PER DAY
     Route: 048
     Dates: start: 20081109, end: 20081122
  14. FUROSEMIDE [Concomitant]
     Indication: HYPERTENSION
     Dosage: 40MG TWICE PER DAY
     Route: 065
     Dates: start: 20081110, end: 20081122
  15. OMEPRAL [Concomitant]
     Indication: PROPHYLAXIS AGAINST GASTROINTESTINAL ULCER
     Dosage: 20MG PER DAY
     Route: 048
     Dates: start: 20081110, end: 20081122
  16. ALDOMET [Concomitant]
     Indication: HYPERTENSION
     Dosage: 125MG THREE TIMES PER DAY
     Route: 048
     Dates: start: 20081110, end: 20081122
  17. PRECIPITATED CALCIUM CARBONATE [Concomitant]
     Indication: GASTRITIS PROPHYLAXIS
     Dosage: 1G THREE TIMES PER DAY
     Route: 065
     Dates: start: 20081110, end: 20081122
  18. ADALAT CC [Concomitant]
     Indication: HYPERTENSION
     Dosage: 20MG PER DAY
     Route: 048
     Dates: start: 20081110, end: 20081122
  19. PLAVIX [Concomitant]
     Indication: THROMBOSIS PROPHYLAXIS
     Dosage: 25MG PER DAY
     Route: 048
     Dates: start: 20081120, end: 20081127

REACTIONS (3)
  - ANGINA PECTORIS [None]
  - CHEST PAIN [None]
  - PANCYTOPENIA [None]
